FAERS Safety Report 5809818-1 (Version None)
Quarter: 2008Q3

REPORT INFORMATION
  Report Type: 
  Country: None (occurrence: None)
  Receive Date: 20080714
  Receipt Date: 20080714
  Transmission Date: 20090109
  Serious: Yes (Other)
  Sender: FDA-Public Use
  Company Number: None

PATIENT
  Age: 52 Year
  Sex: Female
  Weight: 118.3888 kg

DRUGS (1)
  1. COZAAR [Suspect]
     Indication: HYPERTENSION
     Dosage: 2 TABLETS 2 TIMES A DAY
     Dates: start: 20071015, end: 20080529

REACTIONS (16)
  - BURSITIS [None]
  - CONDITION AGGRAVATED [None]
  - CONTUSION [None]
  - DRY THROAT [None]
  - DYSPHONIA [None]
  - FEAR [None]
  - HYPERTENSION [None]
  - JOINT SWELLING [None]
  - MASS [None]
  - MUSCLE SPASMS [None]
  - OEDEMA PERIPHERAL [None]
  - RENAL DISORDER [None]
  - RENAL PAIN [None]
  - SWELLING [None]
  - URINE OUTPUT DECREASED [None]
  - WEIGHT INCREASED [None]
